FAERS Safety Report 6647734-6 (Version None)
Quarter: 2010Q1

REPORT INFORMATION
  Report Type: 
  Country: None (occurrence: None)
  Receive Date: 20100317
  Receipt Date: 20100308
  Transmission Date: 20100710
  Serious: Yes (Death, Hospitalization, Other)
  Sender: FDA-Public Use
  Company Number: A-CH2010-34332

PATIENT
  Age: 70 Year
  Sex: Male

DRUGS (18)
  1. TRACLEER [Suspect]
     Indication: PULMONARY ARTERIAL HYPERTENSION
     Dosage: 62.5 MG, BID, ORAL
     Route: 048
     Dates: start: 20070406, end: 20091108
  2. OXYGEN (OXYGEN) [Concomitant]
  3. CARBOCISTEINE (CARBOCISTEINE) [Concomitant]
  4. AMBROXOL (AMBROXOL HYDROCHLORIDE) [Concomitant]
  5. REBAMIPIDE (REBAMIPIDE) [Concomitant]
  6. BENPROPERINE PHOSPHATE (BENPROPERINE PHOSPHATE) [Concomitant]
  7. ETIZOLAM (ETIZOLAM) [Concomitant]
  8. PREDNISOLONE [Concomitant]
  9. NITRAZEPAM [Concomitant]
  10. ZOPICLONE (ZOPICLONE) [Concomitant]
  11. TRIMEBUTINE MALEATE (TRIMEBUTINE MALEATE) [Concomitant]
  12. CLOSTRIDIUM BUTYRICUM (CLOSTRIDIUM BUTYRICUM) [Concomitant]
  13. FAMOTIDINE [Concomitant]
  14. BERAPROST SODIUM (BERAPROST SODIUM) [Concomitant]
  15. ALENDRONATE SODIUM [Concomitant]
  16. BENIDIPINE HYDROCHLORIDE (BENIDIPINE HYDROCHLORIDE) [Concomitant]
  17. TRIAZOLAM [Concomitant]
  18. MAGNESIUM OXIDE (MAGNESIUM OXIDE) [Concomitant]

REACTIONS (4)
  - ALANINE AMINOTRANSFERASE INCREASED [None]
  - ASPARTATE AMINOTRANSFERASE INCREASED [None]
  - CONDITION AGGRAVATED [None]
  - INTERSTITIAL LUNG DISEASE [None]
